FAERS Safety Report 11073645 (Version 1)
Quarter: 2015Q2

REPORT INFORMATION
  Report Type: Spontaneous
  Country: US (occurrence: US)
  Receive Date: 20150428
  Receipt Date: 20150428
  Transmission Date: 20150821
  Serious: Yes (Other)
  Sender: FDA-Public Use
  Company Number: PHHY2015US050361

PATIENT
  Age: 59 Year
  Sex: Female

DRUGS (3)
  1. LIDOCAINE. [Suspect]
     Active Substance: LIDOCAINE
     Indication: BLEPHAROPLASTY
     Route: 050
  2. BUPIVACAINE [Suspect]
     Active Substance: BUPIVACAINE
     Indication: BLEPHAROPLASTY
     Route: 050
  3. EPINEPHRINE. [Suspect]
     Active Substance: EPINEPHRINE
     Indication: BLEPHAROPLASTY
     Route: 050

REACTIONS (3)
  - Anaesthetic complication [Recovered/Resolved]
  - Lagophthalmos [Recovered/Resolved]
  - Ophthalmoplegia [Recovered/Resolved]
